FAERS Safety Report 7542014-9 (Version None)
Quarter: 2011Q2

REPORT INFORMATION
  Report Type: 
  Country: None (occurrence: None)
  Receive Date: 20110613
  Receipt Date: 20110530
  Transmission Date: 20111010
  Serious: Yes (Other)
  Sender: FDA-Public Use
  Company Number: FR-SANOFI-AVENTIS-2011SA034982

PATIENT
  Age: 68 Year
  Sex: Female

DRUGS (11)
  1. ARAVA [Suspect]
     Indication: SCLERODERMA
     Route: 048
     Dates: start: 20091001
  2. LEVOTHYROXINE SODIUM [Concomitant]
     Route: 048
  3. PREDNISONE [Concomitant]
     Indication: SCLERODERMA
     Route: 048
  4. ESOMEPRAZOLE MAGNESIUM [Concomitant]
     Route: 065
  5. OLMESARTAN MEDOXOMIL [Concomitant]
     Route: 048
  6. ZOLPIDEM [Concomitant]
     Route: 048
  7. PREDNISONE [Concomitant]
     Indication: RHEUMATOID ARTHRITIS
     Route: 048
  8. ISOPTIN [Concomitant]
     Route: 048
  9. ARAVA [Suspect]
     Indication: RHEUMATOID ARTHRITIS
     Route: 048
     Dates: start: 20091001
  10. BONIVA [Concomitant]
     Route: 065
  11. ACETAMINOPHEN [Concomitant]
     Route: 065

REACTIONS (3)
  - POLYNEUROPATHY [None]
  - MONOPARESIS [None]
  - PARAPARESIS [None]
